FAERS Safety Report 6416894-4 (Version None)
Quarter: 2009Q4

REPORT INFORMATION
  Report Type: 
  Country: None (occurrence: None)
  Receive Date: 20091023
  Receipt Date: 20091010
  Transmission Date: 20100525
  Serious: Yes (Other)
  Sender: FDA-Public Use
  Company Number: 1-20392051

PATIENT
  Sex: Male

DRUGS (2)
  1. URSODIOL [Suspect]
     Indication: HEPATITIS C
     Dosage: 300 MG PER DAY, ORAL
     Route: 048
  2. GLYCYRON (AMMONIUM GLYCYRRHIZATE) [Concomitant]

REACTIONS (6)
  - ANAEMIA [None]
  - CELL MARKER INCREASED [None]
  - HEPATITIS C RNA INCREASED [None]
  - INTERSTITIAL LUNG DISEASE [None]
  - THROMBOCYTOPENIA [None]
  - TRANSAMINASES INCREASED [None]
